FAERS Safety Report 5858992-X (Version None)
Quarter: 2008Q3

REPORT INFORMATION
  Report Type: 
  Country: None (occurrence: None)
  Receive Date: 20080825
  Receipt Date: 20080814
  Transmission Date: 20090109
  Serious: Yes (Hospitalization)
  Sender: FDA-Public Use
  Company Number: 20085471

PATIENT
  Age: 37 Year
  Sex: Male

DRUGS (1)
  1. LIORESAL [Suspect]
     Indication: MUSCLE SPASTICITY

REACTIONS (3)
  - MUSCLE SPASTICITY [None]
  - MUSCLE TWITCHING [None]
  - WITHDRAWAL SYNDROME [None]
